FAERS Safety Report 7334996-5 (Version None)
Quarter: 2011Q1

REPORT INFORMATION
  Report Type: 
  Country: None (occurrence: None)
  Receive Date: 20110307
  Receipt Date: 20110224
  Transmission Date: 20110831
  Serious: Yes (Other)
  Sender: FDA-Public Use
  Company Number: US-ROCHE-762491

PATIENT
  Age: 58 Year
  Sex: Female

DRUGS (1)
  1. TAMIFLU [Suspect]
     Route: 065
     Dates: start: 20110220, end: 20110223

REACTIONS (7)
  - DEMENTIA [None]
  - HALLUCINATIONS, MIXED [None]
  - NAUSEA [None]
  - DELIRIUM [None]
  - DEPRESSED MOOD [None]
  - VOMITING [None]
  - BALANCE DISORDER [None]
